FAERS Safety Report 13553891 (Version 2)
Quarter: 2017Q3

REPORT INFORMATION
  Report Type: Report from Study
  Country: US (occurrence: US)
  Receive Date: 20170517
  Receipt Date: 20170705
  Transmission Date: 20171127
  Serious: Yes (Other)
  Sender: FDA-Public Use
  Company Number: US-AMGEN-USASL2017072019

PATIENT
  Age: 57 Year
  Sex: Female
  Weight: 96.6 kg

DRUGS (1)
  1. REPATHA [Suspect]
     Active Substance: EVOLOCUMAB
     Indication: HYPERCHOLESTEROLAEMIA
     Dosage: 140 MG, Q2WK
     Route: 065
     Dates: start: 20160309, end: 201607

REACTIONS (6)
  - Laboratory test abnormal [Unknown]
  - Pneumonia [Unknown]
  - Nasal dryness [Unknown]
  - Malaise [Recovered/Resolved]
  - Nasopharyngitis [Unknown]
  - Impaired work ability [Unknown]

NARRATIVE: CASE EVENT DATE: 2016
